FAERS Safety Report 10358402 (Version 1)
Quarter: 2014Q3

REPORT INFORMATION
  Report Type: Spontaneous
  Country: GB (occurrence: None)
  Receive Date: 20140730
  Receipt Date: 20140730
  Transmission Date: 20150326
  Serious: Yes (Death, Life-Threatening, Hospitalization, Disabling, Other)
  Sender: FDA-Public Use
  Company Number: AUR-APL-2014-08007

PATIENT
  Age: 26 Year
  Sex: Female
  Weight: 55.3 kg

DRUGS (2)
  1. SERTRALINE 50MG (SERTRALINE) UNKNOWN, 50MG [Suspect]
     Active Substance: SERTRALINE HYDROCHLORIDE
     Indication: SUICIDAL IDEATION
     Route: 048
     Dates: start: 20140306, end: 20140318
  2. SERTRALINE 50MG (SERTRALINE) UNKNOWN, 50MG [Suspect]
     Active Substance: SERTRALINE HYDROCHLORIDE
     Indication: DEPRESSION
     Route: 048
     Dates: start: 20140306, end: 20140318

REACTIONS (9)
  - Drug prescribing error [None]
  - Depression [None]
  - Suicidal ideation [None]
  - Condition aggravated [None]
  - Medication monitoring error [None]
  - Drug ineffective [None]
  - Agitation [None]
  - Completed suicide [None]
  - Restlessness [None]

NARRATIVE: CASE EVENT DATE: 20140307
